FAERS Safety Report 15282838 (Version 1)
Quarter: 2018Q3

REPORT INFORMATION
  Report Type: Spontaneous
  Country: US (occurrence: US)
  Receive Date: 20180816
  Receipt Date: 20180816
  Transmission Date: 20181010
  Serious: Yes (Other)
  Sender: FDA-Public Use
  Company Number: US-BAXTER-2018BAX021458

PATIENT

DRUGS (6)
  1. METHOTREXATE. [Suspect]
     Active Substance: METHOTREXATE
     Indication: MALIGNANT HYDATIDIFORM MOLE
     Dosage: ON DAY 1, TOTAL 13 CYCLES, EMACO CHEMOTHERAPY
     Route: 065
     Dates: end: 201807
  2. ETOPOSIDE. [Suspect]
     Active Substance: ETOPOSIDE
     Indication: MALIGNANT HYDATIDIFORM MOLE
     Dosage: ON DAY 1, DAY 2, TOTAL: 13 CYCLES, EMACO CHEMOTHERAPY
     Route: 065
     Dates: end: 201807
  3. LEUCOVORIN. [Suspect]
     Active Substance: LEUCOVORIN
     Indication: MALIGNANT HYDATIDIFORM MOLE
     Dosage: ON DAY 2, EVERY 6 HOURS FOR 48 HOURS, TOTAL: 13 CYCLES, EMACO CHEMOTHERAPY
     Route: 048
     Dates: end: 201807
  4. CYCLOPHOSPHAMIDE FOR INJECTION, USP [Suspect]
     Active Substance: CYCLOPHOSPHAMIDE
     Indication: MALIGNANT HYDATIDIFORM MOLE
     Dosage: ON DAY 8, TOTAL 13 CYCLES, EMACO CHEMOTHERAPY
     Route: 065
     Dates: end: 201807
  5. VINCRISTINE [Suspect]
     Active Substance: VINCRISTINE
     Indication: MALIGNANT HYDATIDIFORM MOLE
     Dosage: ON DAY 8, TOTAL: 13 CYCLES, EMACO CHEMOTHERAPY
     Route: 065
     Dates: end: 201807
  6. DACTINOMYCIN [Suspect]
     Active Substance: DACTINOMYCIN
     Indication: MALIGNANT HYDATIDIFORM MOLE
     Dosage: ON DAY 1, DAY 2, TOTAL: 13 CYCLES, EMACO CHEMOTHERAPY
     Route: 065
     Dates: end: 201807

REACTIONS (1)
  - Minimal residual disease [Unknown]

NARRATIVE: CASE EVENT DATE: 201807
